FAERS Safety Report 10214612 (Version 2)
Quarter: 2014Q2

REPORT INFORMATION
  Report Type: Report from Study
  Country: CA (occurrence: CA)
  Receive Date: 20140603
  Receipt Date: 20140603
  Transmission Date: 20141212
  Serious: Yes (Hospitalization)
  Sender: FDA-Public Use
  Company Number: CA-BRISTOL-MYERS SQUIBB COMPANY-20439840

PATIENT
  Age: 43 Year
  Sex: Female

DRUGS (4)
  1. ORENCIA [Suspect]
     Indication: RHEUMATOID ARTHRITIS
     Dosage: 1DF=1000 UNIT NOS?LATEST DOSE ON 30-JAN-2014.
     Route: 042
     Dates: start: 20090414
  2. DIGOXIN [Concomitant]
  3. RABEPRAZOLE [Concomitant]
  4. METFORMIN [Concomitant]

REACTIONS (2)
  - Localised infection [Unknown]
  - Leg amputation [Unknown]
